FAERS Safety Report 23666679 (Version 1)
Quarter: 2024Q1

REPORT INFORMATION
  Report Type: Report from Study
  Country: GR (occurrence: GR)
  Receive Date: 20240325
  Receipt Date: 20240325
  Transmission Date: 20240410
  Serious: Yes (Hospitalization)
  Sender: FDA-Public Use
  Company Number: GR-ABBVIE-5689773

PATIENT
  Sex: Female

DRUGS (2)
  1. CARBIDOPA\LEVODOPA [Suspect]
     Active Substance: CARBIDOPA\LEVODOPA
     Indication: Parkinson^s disease
     Dosage: MORNING DOSE:3.0ML; CONTINUOUS RATE: 3.5ML/H; EXTRA DOSE: 2.0ML, DOSE INCREASED
     Route: 050
  2. CARBIDOPA\LEVODOPA [Suspect]
     Active Substance: CARBIDOPA\LEVODOPA
     Dosage: MORNING DOSE:3.0ML; CONTINUOUS RATE: 3.0ML/H; EXTRA DOSE: 2.0ML,
     Route: 050
     Dates: start: 20220704

REACTIONS (3)
  - Respiratory tract infection [Recovered/Resolved]
  - Malaise [Unknown]
  - Therapeutic product effect incomplete [Unknown]
